FAERS Safety Report 22594434 (Version 2)
Quarter: 2023Q2

REPORT INFORMATION
  Report Type: Spontaneous
  Country: GB (occurrence: GB)
  Receive Date: 20230613
  Receipt Date: 20230626
  Transmission Date: 20230721
  Serious: Yes (Hospitalization, Other)
  Sender: FDA-Public Use
  Company Number: None

PATIENT
  Age: 51 Year
  Sex: Male

DRUGS (39)
  1. DALTEPARIN SODIUM [Suspect]
     Active Substance: DALTEPARIN SODIUM
     Dosage: /0.2ML2500UNITS/0.2ML EVERYDAY AT TEATIME (ALONG SIDE 5000)
  2. ENOXAPARIN [Suspect]
     Active Substance: ENOXAPARIN
     Dosage: UNK
  3. AMITRIPTYLINE [Concomitant]
     Active Substance: AMITRIPTYLINE
     Dosage: 50MG: ONE TO BE TAKEN AT NIGHT
  4. AZITHROMYCIN [Concomitant]
     Active Substance: AZITHROMYCIN
     Dosage: ON MONDAY, WEDNESDAY AND FRIDAY ONLYHELD BY HEPATOLOGY
  5. BRINZOLAMIDE [Concomitant]
     Active Substance: BRINZOLAMIDE
     Dosage: /ML; IN THE LEFT EYE
     Dates: end: 20230530
  6. CANDESARTAN [Concomitant]
     Active Substance: CANDESARTAN
     Dosage: 4 MG, 1X/DAY
  7. CARBOCYSTEINE [Concomitant]
     Active Substance: CARBOCYSTEINE
     Dosage: 750 MG, 3X/DAY
  8. CARBOMER [Concomitant]
     Active Substance: CARBOMER
     Dosage: APPLY AS REQUIRED (UNIT %)
  9. CHLORPHENIRAMINE MALEATE [Concomitant]
     Active Substance: CHLORPHENIRAMINE MALEATE
     Dosage: EVERY FOUR TO SIX HOURS, AS NEEDED
  10. CITALOPRAM [Concomitant]
     Active Substance: CITALOPRAM HYDROBROMIDE
     Dosage: 20 MG, 1X/DAY
  11. DAPAGLIFLOZIN [Concomitant]
     Active Substance: DAPAGLIFLOZIN
     Dosage: 10 MG, 1X/DAY
  12. DOCUSATE [Concomitant]
     Active Substance: DOCUSATE
     Dosage: TAKE TWO MORNING, ONE AT LUNCH, TWO EVENING
     Dates: end: 20230530
  13. FAMOTIDINE [Concomitant]
     Active Substance: FAMOTIDINE
     Dosage: 20 MG, 1X/DAY
     Dates: end: 20230530
  14. HYDROCORTISONE [Concomitant]
     Active Substance: HYDROCORTISONE
     Dosage: 10MG/10MG/5MG AS DIRECTED BY CLINIC
  15. IPRATROPIUM [Concomitant]
     Active Substance: IPRATROPIUM
     Dosage: UP TO FOUR TIMES A DAY
  16. IVABRADINE [Concomitant]
     Active Substance: IVABRADINE
     Dosage: UNIT: MG
  17. LATANOPROST [Concomitant]
     Active Substance: LATANOPROST
     Dosage: DROP AT NIGHT IN BOTH EYES
  18. NALOXEGOL [Concomitant]
     Active Substance: NALOXEGOL
     Dosage: MORNING
  19. NOVORAPID [Concomitant]
     Active Substance: INSULIN ASPART
     Dosage: 8 UNITS EVERY MORNING, 8 UNITS LUNCH, 10 UNITS TEA
  20. OMEPRAZOLE [Concomitant]
     Active Substance: OMEPRAZOLE
     Dosage: EVERY MORNING
  21. OXYCODONE [Concomitant]
     Active Substance: OXYCODONE
     Indication: Pain
     Dosage: EVERY 4-6 HOURS
  22. PEPPERMINT OIL [MENTHA X PIPERITA ESSENTIAL OIL] [Concomitant]
     Dosage: BEFORE FOOD
  23. ACETAMINOPHEN [Concomitant]
     Active Substance: ACETAMINOPHEN
     Dosage: EVERY 4-6 HOURS UP TO FOUR TIMES
  24. PREGABALIN [Concomitant]
     Active Substance: PREGABALIN
     Dosage: 50 MG, 2X/DAY
  25. SENNA LEAF [Concomitant]
     Active Substance: SENNA LEAF
     Dosage: AT NIGHT
  26. SODIUM HYALURONATE [Concomitant]
     Active Substance: HYALURONATE SODIUM
     Dosage: AS DIRECTED (UNIT:%)
  27. SYMBICORT [Concomitant]
     Active Substance: BUDESONIDE\FORMOTEROL FUMARATE DIHYDRATE
     Indication: Dyspnoea
     Dosage: PUFFS TWICE DAILY NIGHT AND A FURTHER TWO PUFFS FOUR TIMES A DAY
     Route: 055
  28. ALBUTEROL [Concomitant]
     Active Substance: ALBUTEROL
     Dosage: UP TO FOUR TIMES A DAY, AS NEEDED
     Route: 055
  29. SPIRIVA [Concomitant]
     Active Substance: TIOTROPIUM BROMIDE MONOHYDRATE
     Dosage: PUFFS
     Route: 055
  30. SPIRONOLACTONE [Concomitant]
     Active Substance: SPIRONOLACTONE
     Dosage: 50 MG, 1X/DAY
  31. TAPENTADOL [Concomitant]
     Active Substance: TAPENTADOL
     Dosage: 250 MG
  32. THEOPHYLLINE ANHYDROUS [Concomitant]
     Active Substance: THEOPHYLLINE ANHYDROUS
     Dosage: AT NIGHT;300MG: ONE TO BE TAKEN AT NIGHT 400MG: ONE TO BE TAKEN EACH MORNING
  33. GAVISCON ADVANCED [Concomitant]
     Dosage: ONE OR TWO SPOONFULS UP TO FOUR TIMES A DAY
  34. EPIPEN [Concomitant]
     Active Substance: EPINEPHRINE
     Dosage: AS DIRECTED
  35. CALCIUM\CHOLECALCIFEROL [Concomitant]
     Active Substance: CALCIUM\CHOLECALCIFEROL
  36. FLEXITOL HEEL [Concomitant]
     Dosage: AS DIRECTED
  37. LANTUS [Concomitant]
     Active Substance: INSULIN GLARGINE
     Dosage: MORNING
  38. MEPOLIZUMAB [Concomitant]
     Active Substance: MEPOLIZUMAB
     Dates: start: 20230330
  39. POLYETHYLENE GLYCOLS [Concomitant]
     Active Substance: POLYETHYLENE GLYCOLS

REACTIONS (1)
  - Haematoma [Unknown]
